FAERS Safety Report 20590730 (Version 1)
Quarter: 2022Q1

REPORT INFORMATION
  Report Type: Spontaneous
  Country: US (occurrence: US)
  Receive Date: 20220314
  Receipt Date: 20220314
  Transmission Date: 20220424
  Serious: No
  Sender: FDA-Public Use
  Company Number: US-TAKEDA-2022TUS016078

PATIENT
  Sex: Female

DRUGS (2)
  1. ENTYVIO [Suspect]
     Active Substance: VEDOLIZUMAB
     Indication: Crohn^s disease
     Dosage: UNK
     Route: 042
     Dates: start: 202201
  2. PENTASA [Concomitant]
     Active Substance: MESALAMINE
     Dosage: UNK
     Route: 048

REACTIONS (2)
  - Inflammation [Unknown]
  - Nasopharyngitis [Unknown]
